FAERS Safety Report 10275741 (Version 1)
Quarter: 2014Q3

REPORT INFORMATION
  Report Type: Spontaneous
  Country: US (occurrence: None)
  Receive Date: 20140701
  Receipt Date: 20140701
  Transmission Date: 20150326
  Serious: Yes (Hospitalization, Other)
  Sender: FDA-Public Use
  Company Number: 2010S1000511

PATIENT
  Age: 81 Year
  Sex: Female

DRUGS (9)
  1. ALLOPURINOL (ALLOPURINOL) [Concomitant]
     Active Substance: ALLOPURINOL
  2. CLONIDINE (CLONIDINE) [Concomitant]
     Active Substance: CLONIDINE
  3. ENALAPRIL (ENALAPRIL) [Concomitant]
     Active Substance: ENALAPRIL
  4. ASPIRIN (ACETYLSALICYLIC ACID) [Concomitant]
     Active Substance: ASPIRIN
  5. ATENOLOL (ATENOLOL) [Concomitant]
     Active Substance: ATENOLOL
  6. HYDROXYCHLOROQUINE (HYDROXYCHLOROQUINE) [Concomitant]
  7. PHOSPHO-SODA [Suspect]
     Active Substance: SODIUM PHOSPHATE, DIBASIC\SODIUM PHOSPHATE, MONOBASIC
     Indication: COLONOSCOPY
     Route: 048
     Dates: start: 20081021, end: 20081021
  8. NORVASC (AMLODIPINE) [Concomitant]
  9. LIPITOR [Concomitant]
     Active Substance: ATORVASTATIN CALCIUM

REACTIONS (13)
  - Hyperphosphataemia [None]
  - Azotaemia [None]
  - Diarrhoea [None]
  - Metabolic acidosis [None]
  - Renal ischaemia [None]
  - Colitis [None]
  - Hypomagnesaemia [None]
  - Renal failure acute [None]
  - Renal tubular necrosis [None]
  - Hypocalcaemia [None]
  - Osteopenia [None]
  - Dehydration [None]
  - Hypotension [None]

NARRATIVE: CASE EVENT DATE: 20081023
